FAERS Safety Report 13012906 (Version 1)
Quarter: 2016Q4

REPORT INFORMATION
  Report Type: Spontaneous
  Country: US (occurrence: US)
  Receive Date: 20161209
  Receipt Date: 20161209
  Transmission Date: 20170207
  Serious: Yes (Disabling)
  Sender: FDA-Public Use
  Company Number: None

PATIENT
  Age: 35 Year
  Sex: Male
  Weight: 76.5 kg

DRUGS (8)
  1. WARFARIN [Concomitant]
     Active Substance: WARFARIN
  2. SEROQUEL [Concomitant]
     Active Substance: QUETIAPINE FUMARATE
  3. MIRTAZEPINE [Concomitant]
     Active Substance: MIRTAZAPINE
  4. CLONAZEPAM. [Concomitant]
     Active Substance: CLONAZEPAM
  5. GENVOYA [Concomitant]
     Active Substance: COBICISTAT\ELVITEGRAVIR\EMTRICITABINE\TENOFOVIR ALAFENAMIDE FUMARATE
  6. MEGESTROL ACETATE BRISTOL MYERS SQUIBB [Suspect]
     Active Substance: MEGESTROL ACETATE
     Indication: WEIGHT DECREASED
     Dosage: ?          QUANTITY:40 ML;?
     Route: 048
     Dates: start: 20160905, end: 20161123
  7. PRILOSEC [Concomitant]
     Active Substance: OMEPRAZOLE MAGNESIUM
  8. TYLENOL [Concomitant]
     Active Substance: ACETAMINOPHEN

REACTIONS (2)
  - Deep vein thrombosis [None]
  - Post thrombotic syndrome [None]

NARRATIVE: CASE EVENT DATE: 20160920
